FAERS Safety Report 19417080 (Version 1)
Quarter: 2021Q2

REPORT INFORMATION
  Report Type: Spontaneous
  Country: US (occurrence: US)
  Receive Date: 20210614
  Receipt Date: 20210614
  Transmission Date: 20210717
  Serious: No
  Sender: FDA-Public Use
  Company Number: None

PATIENT
  Age: 51 Year
  Sex: Male
  Weight: 89 kg

DRUGS (1)
  1. CYCLOBENZAPRINE (CYCLOBENZAPRINE HCL 10MG TAB) [Suspect]
     Active Substance: CYCLOBENZAPRINE
     Indication: PAIN
     Route: 048
     Dates: start: 20190712, end: 20190716

REACTIONS (2)
  - Sedation [None]
  - Dizziness [None]

NARRATIVE: CASE EVENT DATE: 20190715
